FAERS Safety Report 24544265 (Version 1)
Quarter: 2024Q4

REPORT INFORMATION
  Report Type: Spontaneous
  Country: JP (occurrence: JP)
  Receive Date: 20241024
  Receipt Date: 20241024
  Transmission Date: 20250115
  Serious: Yes (Death, Other)
  Sender: EXELIXIS
  Company Number: JP-TAKEDA-2024TJP015122

PATIENT
  Age: 65 Year
  Sex: Male
  Weight: 55 kg

DRUGS (1)
  1. CABOMETYX [Suspect]
     Active Substance: CABOZANTINIB S-MALATE
     Indication: Hepatocellular carcinoma
     Dosage: 10 MG
     Route: 065
     Dates: start: 20230309, end: 20230420

REACTIONS (1)
  - Death [Fatal]

NARRATIVE: CASE EVENT DATE: 20230602
